FAERS Safety Report 9232052 (Version 1)
Quarter: 2013Q2

REPORT INFORMATION
  Report Type: Spontaneous
  Country: US (occurrence: US)
  Receive Date: 20130415
  Receipt Date: 20130415
  Transmission Date: 20140414
  Serious: Yes (Hospitalization)
  Sender: FDA-Public Use
  Company Number: US-CELGENEUS-163-POMAL-13041124

PATIENT
  Age: 52 Year
  Sex: Male

DRUGS (1)
  1. POMALYST [Suspect]
     Indication: PLASMA CELL MYELOMA
     Dosage: 4 MILLIGRAM
     Route: 048
     Dates: start: 20130311, end: 20130401

REACTIONS (2)
  - Myocardial infarction [Not Recovered/Not Resolved]
  - Coma [Not Recovered/Not Resolved]
